FAERS Safety Report 5705927-6 (Version None)
Quarter: 2008Q2

REPORT INFORMATION
  Report Type: 
  Country: None (occurrence: None)
  Receive Date: 20080411
  Receipt Date: 20080401
  Transmission Date: 20081010
  Serious: Yes (Other)
  Sender: FDA-Public Use
  Company Number: 2007BI023769

PATIENT
  Age: 55 Year
  Sex: Female

DRUGS (1)
  1. TYSABRI [Suspect]
     Indication: MULTIPLE SCLEROSIS
     Dosage: 300 MG;QM;IV
     Route: 042
     Dates: start: 20071007, end: 20071105

REACTIONS (6)
  - ANAPHYLACTIC REACTION [None]
  - DRUG HYPERSENSITIVITY [None]
  - DRUG SPECIFIC ANTIBODY PRESENT [None]
  - INFUSION RELATED REACTION [None]
  - NEUTRALISING ANTIBODIES POSITIVE [None]
  - SPEECH DISORDER [None]
